FAERS Safety Report 9750338 (Version 1)
Quarter: 2013Q4

REPORT INFORMATION
  Report Type: Spontaneous
  Country: IT (occurrence: IT)
  Receive Date: 20131212
  Receipt Date: 20131212
  Transmission Date: 20140711
  Serious: Yes (Other)
  Sender: FDA-Public Use
  Company Number: IT-TEVA-448248ISR

PATIENT
  Age: 30 Year
  Sex: Female

DRUGS (1)
  1. CISPLATIN [Suspect]
     Indication: PRODUCT USED FOR UNKNOWN INDICATION

REACTIONS (2)
  - Dyspnoea [Recovered/Resolved]
  - Lacrimation increased [Recovered/Resolved]
